FAERS Safety Report 7260857-6 (Version None)
Quarter: 2011Q1

REPORT INFORMATION
  Report Type: 
  Country: None (occurrence: None)
  Receive Date: 20110130
  Receipt Date: 20101122
  Transmission Date: 20110831
  Serious: No
  Sender: FDA-Public Use
  Company Number: US-ABBOTT-10P-163-0687302-00

PATIENT
  Age: 76 Year
  Sex: Male

DRUGS (9)
  1. AZULFIDINE [Concomitant]
     Indication: COLITIS
     Dosage: 4 TABS AM AND PM
  2. CALCIUM+D3 [Concomitant]
     Indication: PRODUCT USED FOR UNKNOWN INDICATION
  3. LOVAZA [Concomitant]
     Indication: SKIN DISORDER
  4. MERCAPTOPURINE [Concomitant]
     Indication: PRODUCT USED FOR UNKNOWN INDICATION
  5. LOMOTIL [Concomitant]
     Indication: DEFAECATION URGENCY
  6. MULTI-VITAMINS [Concomitant]
     Indication: PRODUCT USED FOR UNKNOWN INDICATION
  7. HUMIRA [Suspect]
     Indication: COLITIS ULCERATIVE
     Dates: start: 20100701
  8. FOLIC ACID [Concomitant]
     Indication: PRODUCT USED FOR UNKNOWN INDICATION
  9. LOVAZA [Concomitant]
     Indication: GASTROINTESTINAL DISORDER

REACTIONS (5)
  - NIGHTMARE [None]
  - SLEEP DISORDER [None]
  - CONFUSIONAL STATE [None]
  - OEDEMA PERIPHERAL [None]
  - HEADACHE [None]
